FAERS Safety Report 25084741 (Version 1)
Quarter: 2025Q1

REPORT INFORMATION
  Report Type: Spontaneous
  Country: US (occurrence: US)
  Receive Date: 20250317
  Receipt Date: 20250317
  Transmission Date: 20250409
  Serious: No
  Sender: MYLAN
  Company Number: US-MYLANLABS-2025M1020504

PATIENT
  Sex: Female
  Weight: 81.65 kg

DRUGS (1)
  1. ESTRADIOL TRANSDERMAL SYSTEM [Suspect]
     Active Substance: ESTRADIOL
     Indication: Pelvic floor dysfunction
     Dosage: 0.075 MILLIGRAM, QD (TWICE A WEEK)

REACTIONS (1)
  - Heavy menstrual bleeding [Unknown]
